FAERS Safety Report 6145860-1 (Version None)
Quarter: 2009Q2

REPORT INFORMATION
  Report Type: 
  Country: None (occurrence: None)
  Receive Date: 20090406
  Receipt Date: 20090406
  Transmission Date: 20091009
  Serious: No
  Sender: FDA-Public Use
  Company Number: None

PATIENT
  Age: 62 Year
  Sex: Female
  Weight: 51.7101 kg

DRUGS (1)
  1. BUPROPION HCL [Suspect]
     Indication: NICOTINE DEPENDENCE
     Dosage: 150MG 1 X A DAY ORAL
     Route: 048

REACTIONS (3)
  - DRUG INEFFECTIVE [None]
  - THERAPEUTIC RESPONSE UNEXPECTED WITH DRUG SUBSTITUTION [None]
  - TOBACCO USER [None]
